FAERS Safety Report 6678204-7 (Version None)
Quarter: 2010Q2

REPORT INFORMATION
  Report Type: 
  Country: None (occurrence: None)
  Receive Date: 20100412
  Receipt Date: 20100329
  Transmission Date: 20101027
  Serious: Yes (Other)
  Sender: FDA-Public Use
  Company Number: AT-AMGEN-US403413

PATIENT
  Age: 18 Year
  Sex: Male

DRUGS (4)
  1. ENBREL [Suspect]
     Indication: JUVENILE ARTHRITIS
     Route: 058
     Dates: start: 20040101, end: 20100301
  2. HUMIRA [Concomitant]
     Dosage: DOSE UNKNOWN
     Route: 065
     Dates: start: 20090701
  3. IBRUPROFEN [Concomitant]
     Dosage: DOSIS AND FREQUENCY UNKNOWN
     Route: 065
     Dates: end: 20100301
  4. METHOTREXATE [Concomitant]
     Dosage: 15 MG FREQUENCY UNKNOWN
     Route: 065
     Dates: end: 20100301

REACTIONS (6)
  - ARTHRITIS [None]
  - CONDITION AGGRAVATED [None]
  - LUPUS-LIKE SYNDROME [None]
  - MUSCULAR DYSTROPHY [None]
  - NEPHRITIS [None]
  - OEDEMA PERIPHERAL [None]
